FAERS Safety Report 23298276 (Version 1)
Quarter: 2023Q4

REPORT INFORMATION
  Report Type: Report from Study
  Country: CA (occurrence: CA)
  Receive Date: 20231214
  Receipt Date: 20231214
  Transmission Date: 20240110
  Serious: Yes (Other)
  Sender: FDA-Public Use
  Company Number: CA-PFIZER INC-202300439825

PATIENT
  Age: 21 Year
  Sex: Male

DRUGS (1)
  1. ADALIMUMAB [Suspect]
     Active Substance: ADALIMUMAB\ISOPROPYL ALCOHOL
     Indication: Crohn^s disease
     Dosage: 40.0 MG, 1 EVERY 1 WEEKS
     Route: 058

REACTIONS (4)
  - Alopecia [Unknown]
  - Anal abscess [Unknown]
  - Psoriasis [Unknown]
  - Off label use [Unknown]
